FAERS Safety Report 18427573 (Version 2)
Quarter: 2020Q4

REPORT INFORMATION
  Report Type: Spontaneous
  Country: US (occurrence: US)
  Receive Date: 20201026
  Receipt Date: 20201102
  Transmission Date: 20210114
  Serious: No
  Sender: FDA-Public Use
  Company Number: US-PFIZER INC-2020409061

PATIENT
  Age: 65 Year
  Sex: Female
  Weight: 54.88 kg

DRUGS (3)
  1. FOLIC ACID. [Concomitant]
     Active Substance: FOLIC ACID
     Dosage: 1 MG, DAILY (TAKE 1 TABLET DAILY AS DIRECTED)
     Route: 048
     Dates: start: 20200114
  2. XELJANZ XR [Suspect]
     Active Substance: TOFACITINIB CITRATE
     Indication: RHEUMATOID ARTHRITIS
     Dosage: 11 MG, 1X/DAY
     Route: 048
     Dates: start: 20200114
  3. METHOTREXATE. [Concomitant]
     Active Substance: METHOTREXATE
     Dosage: 6 DF, WEEKLY (TAKE 6 TABLETS WEEKLY)
     Route: 048
     Dates: start: 20200114

REACTIONS (1)
  - No adverse event [Unknown]
